FAERS Safety Report 7389181-8 (Version None)
Quarter: 2011Q2

REPORT INFORMATION
  Report Type: 
  Country: None (occurrence: None)
  Receive Date: 20110401
  Receipt Date: 20110323
  Transmission Date: 20111010
  Serious: Yes (Other)
  Sender: FDA-Public Use
  Company Number: FR-ASTRAZENECA-2011SE16913

PATIENT
  Sex: Male

DRUGS (6)
  1. PREVISCAN [Suspect]
     Route: 048
     Dates: start: 20060101
  2. ATACAND [Suspect]
     Indication: HYPERTENSION
     Route: 048
     Dates: start: 20070101
  3. DIGITALINE NATIVELLE [Suspect]
     Indication: ARRHYTHMIA
     Route: 048
     Dates: start: 20060101
  4. INSPRA [Suspect]
     Route: 048
     Dates: start: 20090101
  5. TEMERIT [Suspect]
     Indication: HYPERTENSION
     Route: 048
     Dates: start: 20070101
  6. PANDEMRIX [Suspect]
     Indication: ANTIVIRAL PROPHYLAXIS
     Route: 030
     Dates: start: 20091201, end: 20091201

REACTIONS (2)
  - TESTICULAR HYPERTROPHY [None]
  - TESTICULAR SEMINOMA (PURE) [None]
